FAERS Safety Report 12222817 (Version 1)
Quarter: 2016Q1

REPORT INFORMATION
  Report Type: Report from Study
  Country: US (occurrence: US)
  Receive Date: 20160330
  Receipt Date: 20160330
  Transmission Date: 20160526
  Serious: Yes (Hospitalization)
  Sender: FDA-Public Use
  Company Number: US-ABBVIE-16K-163-1589910-00

PATIENT
  Age: 55 Year
  Sex: Female

DRUGS (3)
  1. HUMIRA [Suspect]
     Active Substance: ADALIMUMAB
     Indication: RHEUMATOID ARTHRITIS
     Route: 058
     Dates: start: 20150801
  2. HUMIRA [Suspect]
     Active Substance: ADALIMUMAB
     Route: 058
     Dates: end: 201510
  3. HUMIRA [Suspect]
     Active Substance: ADALIMUMAB
     Route: 058

REACTIONS (13)
  - Sinusitis [Unknown]
  - Arthralgia [Unknown]
  - Gait disturbance [Unknown]
  - Joint stiffness [Unknown]
  - Hyperkalaemia [Unknown]
  - Nasopharyngitis [Unknown]
  - Pain [Unknown]
  - Impaired self-care [Unknown]
  - Joint swelling [Unknown]
  - Activities of daily living impaired [Unknown]
  - Anxiety [Unknown]
  - Gastroenteritis viral [Unknown]
  - Hypertension [Unknown]

NARRATIVE: CASE EVENT DATE: 201511
